FAERS Safety Report 8128497-4 (Version None)
Quarter: 2012Q1

REPORT INFORMATION
  Report Type: 
  Country: None (occurrence: None)
  Receive Date: 20120210
  Receipt Date: 20120125
  Transmission Date: 20120608
  Serious: Yes (Hospitalization)
  Sender: FDA-Public Use
  Company Number: GB-ROCHE-1033797

PATIENT
  Sex: Female
  Weight: 89.9 kg

DRUGS (8)
  1. VEMURAFENIB [Suspect]
     Route: 048
     Dates: start: 20120130
  2. METOCLOPRAMIDE [Concomitant]
     Dates: start: 20110427
  3. CLARITHROMYCIN [Concomitant]
     Dates: start: 20120120, end: 20120121
  4. CLARITHROMYCIN [Concomitant]
     Indication: CHEST PAIN
     Dates: start: 20120118, end: 20120120
  5. VEMURAFENIB [Suspect]
     Indication: MALIGNANT MELANOMA
     Route: 048
     Dates: start: 20101104, end: 20120121
  6. CLARITHROMYCIN [Concomitant]
     Dates: start: 20120130
  7. PROCHLORPERAZINE [Concomitant]
     Dates: start: 20110525
  8. OMEPRAZOLE [Concomitant]
     Dates: start: 20110512

REACTIONS (2)
  - PLEURITIC PAIN [None]
  - DIARRHOEA HAEMORRHAGIC [None]
